FAERS Safety Report 9530529 (Version 1)
Quarter: 2013Q3

REPORT INFORMATION
  Report Type: Spontaneous
  Country: US (occurrence: US)
  Receive Date: 20130918
  Receipt Date: 20130918
  Transmission Date: 20140515
  Serious: No
  Sender: FDA-Public Use
  Company Number: US-BIOGENIDEC-2013BI086083

PATIENT
  Age: 47 Year
  Sex: Female

DRUGS (2)
  1. TYSABRI [Suspect]
     Indication: MULTIPLE SCLEROSIS
     Route: 042
     Dates: start: 20120305
  2. AVONEX [Concomitant]
     Indication: MULTIPLE SCLEROSIS
     Route: 030
     Dates: start: 20030503

REACTIONS (9)
  - Balance disorder [Recovered/Resolved]
  - Diarrhoea [Recovered/Resolved]
  - Weight decreased [Unknown]
  - Abdominal pain upper [Recovered/Resolved]
  - Fungal infection [Recovered/Resolved]
  - Blood test abnormal [Unknown]
  - Asthenia [Not Recovered/Not Resolved]
  - Cystitis [Recovered/Resolved]
  - Constipation [Not Recovered/Not Resolved]
